FAERS Safety Report 8197001-7 (Version None)
Quarter: 2012Q1

REPORT INFORMATION
  Report Type: 
  Country: None (occurrence: None)
  Receive Date: 20120227
  Receipt Date: 20111122
  Transmission Date: 20120608
  Serious: Yes (Other)
  Sender: FDA-Public Use
  Company Number: 337771

PATIENT
  Age: 73 Year
  Sex: Female
  Weight: 62.1 kg

DRUGS (12)
  1. VYTORIN [Concomitant]
  2. BENAZEPRIL HYDROCHLORIDE [Concomitant]
  3. AMBIEN [Concomitant]
  4. ACTOS [Concomitant]
  5. TRICOR /00090101/ (ADENOSINE) [Concomitant]
  6. NEXIUM [Concomitant]
  7. PRANDIN /00882701/ (DEFLAZACORT) [Concomitant]
  8. METFORMIN HCL [Concomitant]
  9. VICTOZA [Suspect]
     Indication: TYPE 2 DIABETES MELLITUS
     Dosage: 1.8 MG, QD, SUBCUTANEOUS 0.6 MG, QD, SUBCUTANEOUS
     Route: 058
     Dates: start: 20110912, end: 20110925
  10. VICTOZA [Suspect]
     Indication: TYPE 2 DIABETES MELLITUS
     Dosage: 1.8 MG, QD, SUBCUTANEOUS 0.6 MG, QD, SUBCUTANEOUS
     Route: 058
     Dates: start: 20110926, end: 20111017
  11. IBUPROFEN [Concomitant]
  12. ERGOCALCIFEROL [Concomitant]

REACTIONS (3)
  - PANCREATITIS [None]
  - URINARY TRACT INFECTION [None]
  - COUGH [None]
